FAERS Safety Report 4820003-2 (Version None)
Quarter: 2005Q4

REPORT INFORMATION
  Report Type: 
  Country: None (occurrence: None)
  Receive Date: 20051031
  Receipt Date: 20050830
  Transmission Date: 20060501
  Serious: No
  Sender: FDA-Public Use
  Company Number: 2005PV001339

PATIENT
  Age: 47 Year
  Sex: Male
  Weight: 135.1719 kg

DRUGS (11)
  1. SYMLIN [Suspect]
     Indication: DIABETES MELLITUS NON-INSULIN-DEPENDENT
     Dosage: 12 MCG; TID; SC; SEE IMAGE
     Route: 058
     Dates: start: 20050822, end: 20050829
  2. SYMLIN [Suspect]
     Indication: DIABETES MELLITUS NON-INSULIN-DEPENDENT
     Dosage: 12 MCG; TID; SC; SEE IMAGE
     Route: 058
     Dates: start: 20050829, end: 20050829
  3. SYMLIN [Suspect]
     Indication: DIABETES MELLITUS NON-INSULIN-DEPENDENT
     Dosage: 12 MCG; TID; SC; SEE IMAGE
     Route: 058
     Dates: start: 20050830
  4. NOVOLOG [Concomitant]
  5. LANTUS [Concomitant]
  6. ACCUPRIL [Concomitant]
  7. FUROSEMIDE [Concomitant]
  8. ZOCOR [Concomitant]
  9. DIOVAN [Concomitant]
  10. PROTONIX [Concomitant]
  11. MAGNESIUM [Concomitant]

REACTIONS (5)
  - ABDOMINAL PAIN UPPER [None]
  - BLOOD GLUCOSE INCREASED [None]
  - MEDICATION ERROR [None]
  - NAUSEA [None]
  - WEIGHT DECREASED [None]
